FAERS Safety Report 7000552-1 (Version None)
Quarter: 2010Q3

REPORT INFORMATION
  Report Type: 
  Country: None (occurrence: None)
  Receive Date: 20100920
  Receipt Date: 20100716
  Transmission Date: 20110219
  Serious: Yes (Hospitalization)
  Sender: FDA-Public Use
  Company Number: US-ASTRAZENECA-2010SE33308

PATIENT
  Age: 53 Year
  Sex: Female

DRUGS (6)
  1. SEROQUEL [Suspect]
     Indication: MAJOR DEPRESSION
     Dosage: 300MG THREE TIMES A DAY
     Route: 048
  2. SEROQUEL [Suspect]
     Indication: ANXIETY
     Dosage: 300MG THREE TIMES A DAY
     Route: 048
  3. SEROQUEL [Suspect]
     Indication: BORDERLINE PERSONALITY DISORDER
     Dosage: 300MG THREE TIMES A DAY
     Route: 048
  4. VALIUM [Concomitant]
  5. ZOLOFT [Concomitant]
  6. REMERON [Concomitant]

REACTIONS (1)
  - URINARY RETENTION [None]
